FAERS Safety Report 5929293-6 (Version None)
Quarter: 2008Q4

REPORT INFORMATION
  Report Type: 
  Country: None (occurrence: None)
  Receive Date: 20081023
  Receipt Date: 20081023
  Transmission Date: 20090506
  Serious: Yes (Other)
  Sender: FDA-Public Use
  Company Number: None

PATIENT
  Sex: Female
  Weight: 58.9676 kg

DRUGS (1)
  1. PORTIA-21 [Suspect]
     Indication: MENSTRUATION IRREGULAR
     Dosage: 1 QD PO
     Route: 048
     Dates: start: 20080501, end: 20081020

REACTIONS (4)
  - MENORRHAGIA [None]
  - METRORRHAGIA [None]
  - MOOD SWINGS [None]
  - PRODUCT QUALITY ISSUE [None]
